FAERS Safety Report 9714208 (Version 1)
Quarter: 2013Q4

REPORT INFORMATION
  Report Type: Spontaneous
  Country: US (occurrence: US)
  Receive Date: 20131126
  Receipt Date: 20131126
  Transmission Date: 20140711
  Serious: No
  Sender: FDA-Public Use
  Company Number: US-GILEAD-2008-0019341

PATIENT
  Sex: Female
  Weight: 56.7 kg

DRUGS (13)
  1. LETAIRIS [Suspect]
     Indication: PULMONARY ARTERIAL HYPERTENSION
     Route: 048
     Dates: start: 20071129
  2. REVATIO [Concomitant]
  3. OXYGEN [Concomitant]
  4. FLOLAN [Concomitant]
  5. LASIX [Concomitant]
  6. ALDACTONE [Concomitant]
  7. BENADRYL [Concomitant]
  8. LOPERAMIDE [Concomitant]
  9. LANOXIN [Concomitant]
  10. CLARITIN [Concomitant]
  11. TYLENOL [Concomitant]
  12. AMBIEN [Concomitant]
  13. MULTIVITAMIN [Concomitant]

REACTIONS (8)
  - Nasal discomfort [None]
  - Throat irritation [None]
  - Oedema [None]
  - Nasal congestion [None]
  - Palpitations [None]
  - Hot flush [None]
  - Abdominal pain [None]
  - Constipation [None]
